FAERS Safety Report 10331823 (Version 1)
Quarter: 2014Q3

REPORT INFORMATION
  Report Type: Spontaneous
  Country: US (occurrence: US)
  Receive Date: 20140722
  Receipt Date: 20140722
  Transmission Date: 20150326
  Serious: Yes (Other)
  Sender: FDA-Public Use
  Company Number: US-TEVA-495104USA

PATIENT
  Sex: Female

DRUGS (1)
  1. COPAXONE [Suspect]
     Active Substance: GLATIRAMER ACETATE
     Indication: MULTIPLE SCLEROSIS
     Dates: start: 20071216

REACTIONS (6)
  - Dyspnoea [Unknown]
  - Flushing [Unknown]
  - Chest discomfort [Unknown]
  - Hypoaesthesia oral [Unknown]
  - Multiple sclerosis relapse [Unknown]
  - Fall [Unknown]
